FAERS Safety Report 6303888-2 (Version None)
Quarter: 2009Q3

REPORT INFORMATION
  Report Type: 
  Country: None (occurrence: None)
  Receive Date: 20090805
  Receipt Date: 20090723
  Transmission Date: 20100115
  Serious: Yes (Life-Threatening, Hospitalization)
  Sender: FDA-Public Use
  Company Number: DSU-2009-01511

PATIENT
  Age: 73 Year
  Sex: Male
  Weight: 72.5755 kg

DRUGS (3)
  1. BENICAR HCT [Suspect]
     Indication: HYPERTENSION
     Dosage: 20/12.5MG (QD),  PER ORAL
     Route: 048
     Dates: start: 20060101, end: 20090704
  2. ZETIA [Concomitant]
  3. ALLOPURINOL [Concomitant]

REACTIONS (5)
  - ALCOHOL USE [None]
  - ANGIOEDEMA [None]
  - GOUT [None]
  - OBSTRUCTIVE AIRWAYS DISORDER [None]
  - WEIGHT DECREASED [None]
